FAERS Safety Report 5353109-2 (Version None)
Quarter: 2007Q2

REPORT INFORMATION
  Report Type: 
  Country: None (occurrence: None)
  Receive Date: 20070607
  Receipt Date: 20070529
  Transmission Date: 20071010
  Serious: Yes (Disabling)
  Sender: FDA-Public Use
  Company Number: LTI2007A00125

PATIENT
  Age: 61 Year
  Sex: Male

DRUGS (5)
  1. ACTOS [Suspect]
     Indication: DIABETES MELLITUS NON-INSULIN-DEPENDENT
     Dosage: 15 MG (15 MG, 1 IN 1 D)
     Route: 048
     Dates: start: 20070122, end: 20070227
  2. TENORDATE (NIFEDIPINE, ATENOLOL) [Concomitant]
  3. LOSARTAN POTASSIUM AND HYDROCHLOROTHIAZIDE [Concomitant]
  4. HYPERIUM (RILMENIDINE) [Concomitant]
  5. ALLOPURINOL [Concomitant]

REACTIONS (2)
  - ABASIA [None]
  - ARTHRALGIA [None]
